FAERS Safety Report 5935174-4 (Version None)
Quarter: 2008Q4

REPORT INFORMATION
  Report Type: 
  Country: None (occurrence: None)
  Receive Date: 20081028
  Receipt Date: 20081020
  Transmission Date: 20090506
  Serious: Yes (Death)
  Sender: FDA-Public Use
  Company Number: 1000001204

PATIENT
  Age: 47 Year
  Sex: Female
  Weight: 52 kg

DRUGS (2)
  1. ESCITALOPRAM OXALATE [Suspect]
     Indication: DEPRESSION
     Dosage: 10 MG 910 MG, 1 IN 1 D); ORAL
     Route: 048
     Dates: start: 20080920, end: 20080922
  2. LEXOMIL [Concomitant]

REACTIONS (1)
  - COMPLETED SUICIDE [None]
